FAERS Safety Report 4441165-5 (Version None)
Quarter: 2004Q3

REPORT INFORMATION
  Report Type: 
  Country: None (occurrence: None)
  Receive Date: 20040728
  Receipt Date: 20040324
  Transmission Date: 20050211
  Serious: No
  Sender: FDA-Public Use
  Company Number: USA040363065

PATIENT
  Age: 50 Year
  Sex: Male
  Weight: 90 kg

DRUGS (2)
  1. STRATTERA [Suspect]
     Indication: ATTENTION DEFICIT/HYPERACTIVITY DISORDER
     Dosage: 80 MG DAY
     Dates: start: 20031201
  2. REMERON [Concomitant]

REACTIONS (4)
  - DRY MOUTH [None]
  - EJACULATION DISORDER [None]
  - LIBIDO DECREASED [None]
  - SEXUAL DYSFUNCTION [None]
